FAERS Safety Report 19103295 (Version 2)
Quarter: 2021Q2

REPORT INFORMATION
  Report Type: Other
  Country: CN (occurrence: CN)
  Receive Date: 20210407
  Receipt Date: 20210416
  Transmission Date: 20210717
  Serious: Yes (Other)
  Sender: FDA-Public Use
  Company Number: CN-ROCHE-2803619

PATIENT
  Age: 66 Year
  Sex: Male
  Weight: 64.9 kg

DRUGS (1)
  1. ACTILYSE [Suspect]
     Active Substance: ALTEPLASE
     Indication: ISCHAEMIC STROKE
     Dosage: 0.77 MG/KG IN 1HOUR
     Route: 065

REACTIONS (2)
  - Hypofibrinogenaemia [Recovered/Resolved]
  - Cerebral infarction [Recovering/Resolving]
